APPROVED DRUG PRODUCT: CARBOPLATIN
Active Ingredient: CARBOPLATIN
Strength: 1GM/100ML (10MG/ML)
Dosage Form/Route: INJECTABLE;INTRAVENOUS
Application: A206775 | Product #005
Applicant: ACCORD HEALTHCARE INC
Approved: Apr 6, 2020 | RLD: No | RS: Yes | Type: RX